FAERS Safety Report 10156894 (Version 2)
Quarter: 2016Q2

REPORT INFORMATION
  Report Type: Spontaneous
  Country: SE (occurrence: SE)
  Receive Date: 20140507
  Receipt Date: 20160506
  Transmission Date: 20160815
  Serious: Yes (Hospitalization, Disabling)
  Sender: FDA-Public Use
  Company Number: SE-JNJFOC-20140500655

PATIENT
  Age: 75 Year
  Sex: Female

DRUGS (7)
  1. MINIFOM [Concomitant]
     Route: 065
  2. EMCONCOR [Concomitant]
     Active Substance: BISOPROLOL FUMARATE
     Route: 065
  3. XARELTO [Suspect]
     Active Substance: RIVAROXABAN
     Indication: ATRIAL FIBRILLATION
     Route: 048
     Dates: start: 20130328, end: 201403
  4. XARELTO [Suspect]
     Active Substance: RIVAROXABAN
     Indication: CEREBROVASCULAR ACCIDENT PROPHYLAXIS
     Route: 048
     Dates: start: 20130328, end: 201403
  5. HYDROXOCOBALAMIN [Concomitant]
     Active Substance: HYDROXOCOBALAMIN
     Route: 065
  6. STERCULIA URENS [Concomitant]
     Route: 065
  7. DIGOXINE [Concomitant]
     Active Substance: DIGOXIN
     Route: 065

REACTIONS (2)
  - Drug ineffective [Recovered/Resolved with Sequelae]
  - Cerebral infarction [Recovered/Resolved with Sequelae]

NARRATIVE: CASE EVENT DATE: 20140320
